FAERS Safety Report 10663958 (Version 1)
Quarter: 2014Q4

REPORT INFORMATION
  Report Type: Spontaneous
  Country: AU (occurrence: AU)
  Receive Date: 20141219
  Receipt Date: 20141219
  Transmission Date: 20150529
  Serious: Yes (Life-Threatening, Hospitalization)
  Sender: FDA-Public Use
  Company Number: PHHY2014AU164689

PATIENT
  Age: 75 Year
  Sex: Male

DRUGS (10)
  1. RIVAROXABAN [Interacting]
     Active Substance: RIVAROXABAN
     Indication: SINUS NODE DYSFUNCTION
     Dosage: 20 MG, QD
     Route: 048
  2. IBUPROFEN. [Suspect]
     Active Substance: IBUPROFEN
     Indication: PRODUCT USED FOR UNKNOWN INDICATION
     Dosage: 400 MG, TID
     Route: 048
  3. METOPROLOL [Concomitant]
     Active Substance: METOPROLOL
     Indication: PRODUCT USED FOR UNKNOWN INDICATION
     Dosage: 50 MG, BID
     Route: 048
  4. TICAGRELOR [Concomitant]
     Active Substance: TICAGRELOR
     Dosage: 90 MG, BID
     Route: 048
  5. ACETYLSALICYLIC ACID [Interacting]
     Active Substance: ASPIRIN
     Dosage: 100 MG, QD
     Route: 048
  6. PARACETAMOL [Concomitant]
     Active Substance: ACETAMINOPHEN
     Indication: CHEST PAIN
     Dosage: 1 G, QID
     Route: 048
  7. IBUPROFEN. [Interacting]
     Active Substance: IBUPROFEN
     Dosage: 400 MG, UNK
     Route: 065
  8. COLCHICINE. [Concomitant]
     Active Substance: COLCHICINE
     Indication: CHEST PAIN
     Dosage: 0.5 MG, QD
     Route: 048
  9. ACETYLSALICYLIC ACID [Interacting]
     Active Substance: ASPIRIN
     Indication: ANTIPLATELET THERAPY
     Dosage: 300 MG, UNK
     Route: 065
  10. TICAGRELOR [Concomitant]
     Active Substance: TICAGRELOR
     Indication: PRODUCT USED FOR UNKNOWN INDICATION
     Dosage: 180 MG, UNK
     Route: 065

REACTIONS (9)
  - Ischaemic hepatitis [Recovered/Resolved]
  - Pericardial effusion [Recovered/Resolved]
  - Drug interaction [Recovered/Resolved]
  - Atrial fibrillation [Recovered/Resolved]
  - Drug clearance decreased [Recovered/Resolved]
  - Coagulopathy [Recovered/Resolved]
  - Shock [Recovered/Resolved]
  - Renal impairment [Recovered/Resolved]
  - Pericardial haemorrhage [Recovered/Resolved]
